FAERS Safety Report 9425392 (Version 2)
Quarter: 2013Q4

REPORT INFORMATION
  Report Type: Spontaneous
  Country: GB (occurrence: GB)
  Receive Date: 20130729
  Receipt Date: 20131112
  Transmission Date: 20140711
  Serious: Yes (Hospitalization)
  Sender: FDA-Public Use
  Company Number: GB-TEVA-420178ISR

PATIENT
  Age: 86 Year
  Sex: Male

DRUGS (12)
  1. PERINDOPRIL [Suspect]
     Route: 048
     Dates: end: 20110414
  2. PERINDOPRIL [Suspect]
     Dosage: RE-STARTED ON PERINDOPRIL AT A LOWER DOSE
     Route: 048
  3. FUROSEMIDE [Suspect]
     Dosage: 40 MILLIGRAM DAILY; ONE IN THE MORNING
  4. FUROSEMIDE [Suspect]
     Dosage: PATIENT SAYS DID NOT TAKE. TAKEN AS NEEDED. ACUTE - ONTOP OF USUAL 40MG
  5. CO-AMILOZIDE [Suspect]
     Dosage: STOPPED/WITHHELD FOLLOWING REACTION
  6. DIGOXIN [Concomitant]
     Dosage: 125 MICROGRAM DAILY;
  7. FERROUS SULPHATE [Concomitant]
     Dosage: 400 MILLIGRAM DAILY;
  8. WARFARIN [Concomitant]
  9. CO-CODAMOL [Concomitant]
  10. LANSOPRAZOLE [Concomitant]
     Dosage: 15 MILLIGRAM DAILY;
  11. GOSERELIN [Concomitant]
  12. HYDROXOCOBALAMIN [Concomitant]

REACTIONS (1)
  - Renal failure acute [Recovered/Resolved]
